FAERS Safety Report 10039046 (Version 2)
Quarter: 2014Q2

REPORT INFORMATION
  Report Type: Spontaneous
  Country: US (occurrence: US)
  Receive Date: 20140326
  Receipt Date: 20140505
  Transmission Date: 20141212
  Serious: Yes (Other)
  Sender: FDA-Public Use
  Company Number: US-TEVA-471288USA

PATIENT
  Age: 46 Year
  Sex: Female
  Weight: 60.38 kg

DRUGS (3)
  1. PARAGARD 380A [Suspect]
     Indication: CONTRACEPTION
     Route: 015
     Dates: start: 20131121, end: 20140306
  2. TAMOXIFEN [Concomitant]
     Indication: NEOPLASM MALIGNANT
     Dosage: 10 MILLIGRAM DAILY;
     Route: 048
  3. MULTIVITAMIN [Concomitant]
     Indication: SUPPLEMENTATION THERAPY

REACTIONS (3)
  - Breast cancer [Unknown]
  - Device dislocation [Recovered/Resolved]
  - Metrorrhagia [Unknown]
